FAERS Safety Report 17048751 (Version 1)
Quarter: 2019Q4

REPORT INFORMATION
  Report Type: Spontaneous
  Country: US (occurrence: US)
  Receive Date: 20191119
  Receipt Date: 20191119
  Transmission Date: 20200122
  Serious: Yes (Hospitalization, Other)
  Sender: FDA-Public Use
  Company Number: US-ZYDUS-043158

PATIENT
  Age: 3 Year
  Sex: Male

DRUGS (1)
  1. OXYCODONE [Suspect]
     Active Substance: OXYCODONE
     Indication: PRODUCT USED FOR UNKNOWN INDICATION
     Route: 048

REACTIONS (12)
  - Unresponsive to stimuli [Unknown]
  - Encephalitis [Unknown]
  - Disseminated intravascular coagulation [Unknown]
  - Muscle spasticity [Unknown]
  - Toxicity to various agents [Unknown]
  - Brain herniation [Unknown]
  - Toxic leukoencephalopathy [Unknown]
  - Blindness [Unknown]
  - Movement disorder [Unknown]
  - Aversion [Unknown]
  - Multiple organ dysfunction syndrome [Unknown]
  - Brain oedema [Unknown]
